FAERS Safety Report 24440480 (Version 1)
Quarter: 2024Q4

REPORT INFORMATION
  Report Type: Spontaneous
  Country: AU (occurrence: AU)
  Receive Date: 20241016
  Receipt Date: 20241016
  Transmission Date: 20250115
  Serious: No
  Sender: ALKEM
  Company Number: AU-ALKEM LABORATORIES LIMITED-AU-ALKEM-2024-00791

PATIENT

DRUGS (1)
  1. DULOXETINE HYDROCHLORIDE [Suspect]
     Active Substance: DULOXETINE HYDROCHLORIDE
     Indication: Product used for unknown indication
     Dosage: UNK
     Route: 065

REACTIONS (5)
  - Decreased appetite [Unknown]
  - Fatigue [Unknown]
  - Headache [Unknown]
  - Malaise [Unknown]
  - Nausea [Unknown]
